FAERS Safety Report 5175727-7 (Version None)
Quarter: 2006Q4

REPORT INFORMATION
  Report Type: 
  Country: None (occurrence: None)
  Receive Date: 20061212
  Receipt Date: 20061212
  Transmission Date: 20070319
  Serious: Yes (Hospitalization)
  Sender: FDA-Public Use
  Company Number: None

PATIENT
  Age: 78 Year
  Sex: Female
  Weight: 70 kg

DRUGS (12)
  1. FLEET PHOSPHO-SODA 2 BOTTLES  UNKNOWN [Suspect]
     Indication: COLONOSCOPY
     Dosage: ONCE PO
     Route: 048
  2. ASPIRIN [Concomitant]
  3. CARVEDILOL [Concomitant]
  4. CLOPIDOGREL [Concomitant]
  5. SIMVASTATIN [Concomitant]
  6. AMLODIPINE [Concomitant]
  7. BISACODYL [Concomitant]
  8. CALCIUM ACETATE [Concomitant]
  9. CLINDAMYCIN [Concomitant]
  10. FUROSEMIDE [Concomitant]
  11. ISOSORBIDE DINITRATE [Concomitant]
  12. HYDRALAZINE HCL [Concomitant]

REACTIONS (4)
  - NEPHROPATHY [None]
  - PROTEINURIA [None]
  - RENAL FAILURE [None]
  - RENAL FAILURE CHRONIC [None]
